FAERS Safety Report 5894141-X (Version None)
Quarter: 2008Q3

REPORT INFORMATION
  Report Type: 
  Country: None (occurrence: None)
  Receive Date: 20080923
  Receipt Date: 20080626
  Transmission Date: 20090109
  Serious: Yes (Hospitalization, Other)
  Sender: FDA-Public Use
  Company Number: US-ASTRAZENECA-2008UW02097

PATIENT
  Age: 36 Year
  Sex: Female
  Weight: 77.1 kg

DRUGS (9)
  1. SEROQUEL [Suspect]
     Indication: MAJOR DEPRESSION
     Dosage: STARTED AT 25 MG DAILY, CURRENTLY AT 700 MG DAILY
     Route: 048
     Dates: start: 20020101
  2. SEROQUEL [Suspect]
     Indication: BIPOLAR DISORDER
     Dosage: STARTED AT 25 MG DAILY, CURRENTLY AT 700 MG DAILY
     Route: 048
     Dates: start: 20020101
  3. SEROQUEL [Suspect]
     Indication: BORDERLINE PERSONALITY DISORDER
     Dosage: STARTED AT 25 MG DAILY, CURRENTLY AT 700 MG DAILY
     Route: 048
     Dates: start: 20020101
  4. SEROQUEL [Suspect]
     Indication: POST-TRAUMATIC STRESS DISORDER
     Dosage: STARTED AT 25 MG DAILY, CURRENTLY AT 700 MG DAILY
     Route: 048
     Dates: start: 20020101
  5. ZYPREXA [Concomitant]
  6. TRAZODONE HCL [Concomitant]
     Dates: start: 20030101
  7. TOPAMAX [Concomitant]
     Dates: start: 20050101
  8. LEXAPRO [Concomitant]
     Dates: start: 20070101
  9. LEXAPRO [Concomitant]
     Dates: start: 20070101

REACTIONS (7)
  - BIPOLAR DISORDER [None]
  - BLOOD CHOLESTEROL INCREASED [None]
  - DEPRESSION [None]
  - DIABETES MELLITUS [None]
  - DIABETIC COMA [None]
  - HYPOTHYROIDISM [None]
  - OBESITY [None]
